FAERS Safety Report 7176471-7 (Version None)
Quarter: 2010Q4

REPORT INFORMATION
  Report Type: 
  Country: None (occurrence: None)
  Receive Date: 20101215
  Receipt Date: 20101215
  Transmission Date: 20110411
  Serious: Yes (Other)
  Sender: FDA-Public Use
  Company Number: None

PATIENT
  Age: 39 Year
  Sex: Female
  Weight: 55.7924 kg

DRUGS (1)
  1. MIRENA [Suspect]
     Indication: HAEMORRHAGE
     Dates: start: 20100801, end: 20101202

REACTIONS (7)
  - DRUG INEFFECTIVE [None]
  - HYPERSENSITIVITY [None]
  - MEDICAL DEVICE COMPLICATION [None]
  - RASH PAPULAR [None]
  - SLEEP DISORDER [None]
  - STRESS [None]
  - URTICARIA [None]
